FAERS Safety Report 9165531 (Version 1)
Quarter: 2013Q1

REPORT INFORMATION
  Report Type: Spontaneous
  Country: US (occurrence: None)
  Receive Date: 20130314
  Receipt Date: 20130314
  Transmission Date: 20140127
  Serious: No
  Sender: FDA-Public Use
  Company Number: None

PATIENT
  Age: 54 Year
  Sex: Female
  Weight: 72.58 kg

DRUGS (1)
  1. BACITRACIN [Suspect]
     Indication: POSTOPERATIVE CARE
     Dosage: SURGICAL STAFF APPLIED ONCE ?7:30AM-8AM ONCE 3/1/2013
     Dates: start: 20130301

REACTIONS (2)
  - Local swelling [None]
  - Anaphylactic reaction [None]
